FAERS Safety Report 7899895-9 (Version None)
Quarter: 2011Q4

REPORT INFORMATION
  Report Type: 
  Country: None (occurrence: None)
  Receive Date: 20111107
  Receipt Date: 20111004
  Transmission Date: 20120403
  Serious: No
  Sender: FDA-Public Use
  Company Number: US-AMGEN-USASP2011042229

PATIENT
  Age: 59 Year
  Sex: Female

DRUGS (1)
  1. ENBREL [Suspect]
     Indication: PSORIATIC ARTHROPATHY
     Dosage: 50 MG, QWK
     Dates: start: 20100728, end: 20110801

REACTIONS (9)
  - PSORIATIC ARTHROPATHY [None]
  - HEADACHE [None]
  - FATIGUE [None]
  - PAIN [None]
  - INJECTION SITE ERYTHEMA [None]
  - ABDOMINAL PAIN UPPER [None]
  - INJECTION SITE REACTION [None]
  - ANAEMIA [None]
  - INJECTION SITE SWELLING [None]
